FAERS Safety Report 9614934 (Version 1)
Quarter: 2013Q4

REPORT INFORMATION
  Report Type: Spontaneous
  Country: US (occurrence: US)
  Receive Date: 20131011
  Receipt Date: 20131011
  Transmission Date: 20140711
  Serious: No
  Sender: FDA-Public Use
  Company Number: US-PFIZER INC-2013292109

PATIENT
  Age: 33 Year
  Sex: Male
  Weight: 75.28 kg

DRUGS (4)
  1. CHANTIX [Suspect]
     Indication: SMOKING CESSATION THERAPY
     Dosage: UNK
     Dates: start: 20090301, end: 20090410
  2. LANTUS [Concomitant]
     Indication: DIABETES MELLITUS
     Dosage: 50 IU, 1X/DAY
  3. HUMALOG [Concomitant]
     Indication: DIABETES MELLITUS
     Dosage: UNK, 3X/DAY
  4. NORCO [Concomitant]
     Indication: PAIN
     Dosage: ^10 MG^, 4X/DAY

REACTIONS (1)
  - Abnormal dreams [Recovered/Resolved]
